FAERS Safety Report 4352725-4 (Version None)
Quarter: 2004Q2

REPORT INFORMATION
  Report Type: 
  Country: None (occurrence: None)
  Receive Date: 20040504
  Receipt Date: 20040503
  Transmission Date: 20050107
  Serious: Yes (Hospitalization)
  Sender: FDA-Public Use
  Company Number: US-GLAXOSMITHKLINE-A0509222A

PATIENT
  Sex: Female

DRUGS (1)
  1. WELLBUTRIN [Suspect]
     Indication: ILL-DEFINED DISORDER
     Dosage: 150MG PER DAY
     Route: 048

REACTIONS (3)
  - FLUID RETENTION [None]
  - JOINT STIFFNESS [None]
  - MUSCLE DISORDER [None]
